FAERS Safety Report 18068233 (Version 1)
Quarter: 2020Q3

REPORT INFORMATION
  Report Type: Spontaneous
  Country: US (occurrence: US)
  Receive Date: 20200724
  Receipt Date: 20200724
  Transmission Date: 20201103
  Serious: Yes (Other)
  Sender: FDA-Public Use
  Company Number: US-009507513-2007USA008611

PATIENT

DRUGS (7)
  1. LENVATINIB [Suspect]
     Active Substance: LENVATINIB
     Dosage: UNK
  2. LENVATINIB [Suspect]
     Active Substance: LENVATINIB
     Dosage: UNK
     Dates: start: 2019
  3. KEYTRUDA [Suspect]
     Active Substance: PEMBROLIZUMAB
     Dosage: UNK
     Route: 042
  4. LENVATINIB [Suspect]
     Active Substance: LENVATINIB
     Dosage: UNK
     Dates: start: 20200708
  5. KEYTRUDA [Suspect]
     Active Substance: PEMBROLIZUMAB
     Dosage: UNK
     Route: 042
     Dates: start: 20190619
  6. THERAPEUTIC RADIOPHARMACEUTICAL (UNSPECIFIED) [Suspect]
     Active Substance: UNSPECIFIED INGREDIENT
  7. KEYTRUDA [Suspect]
     Active Substance: PEMBROLIZUMAB
     Dosage: UNK
     Route: 042
     Dates: start: 2019

REACTIONS (3)
  - Malignant neoplasm progression [Unknown]
  - Mastectomy [Unknown]
  - Thoracoplasty [Unknown]

NARRATIVE: CASE EVENT DATE: 2019
